FAERS Safety Report 14365492 (Version 1)
Quarter: 2018Q1

REPORT INFORMATION
  Report Type: Report from Study
  Country: US (occurrence: US)
  Receive Date: 20180108
  Receipt Date: 20180108
  Transmission Date: 20180509
  Serious: Yes (Hospitalization)
  Sender: FDA-Public Use
  Company Number: US-BEH-2018086447

PATIENT
  Age: 68 Year
  Sex: Female

DRUGS (1)
  1. IVIG LYOPHILIZED [Suspect]
     Active Substance: HUMAN IMMUNOGLOBULIN G
     Indication: PRIMARY IMMUNODEFICIENCY SYNDROME
     Dosage: UNK
     Route: 042

REACTIONS (3)
  - Hospitalisation [Unknown]
  - Vein disorder [Unknown]
  - Extravasation [Unknown]
